FAERS Safety Report 4828596-6 (Version None)
Quarter: 2005Q4

REPORT INFORMATION
  Report Type: 
  Country: None (occurrence: None)
  Receive Date: 20051115
  Receipt Date: 20051110
  Transmission Date: 20060501
  Serious: Yes (Hospitalization)
  Sender: FDA-Public Use
  Company Number: US-JNJFOC-20051103016

PATIENT
  Sex: Male
  Weight: 78.02 kg

DRUGS (11)
  1. FLEXERIL [Suspect]
     Dosage: 5 MG ONE IN ONE DAY - INTERMITTENTLY
     Route: 048
  2. ALPRAZOLAM [Concomitant]
  3. NEXIUM [Concomitant]
  4. DIGITEK [Concomitant]
  5. ZOCOR [Concomitant]
  6. KLOR-CON [Concomitant]
  7. COREG [Concomitant]
  8. FUROSEMIDE [Concomitant]
  9. LISINOPRIL [Concomitant]
  10. PLAVIX [Concomitant]
  11. LORATADINE [Concomitant]

REACTIONS (4)
  - DYSPNOEA [None]
  - PAIN [None]
  - PERICARDIAL EFFUSION [None]
  - WHEEZING [None]
